FAERS Safety Report 23190748 (Version 4)
Quarter: 2024Q1

REPORT INFORMATION
  Report Type: Spontaneous
  Country: BR (occurrence: BR)
  Receive Date: 20231116
  Receipt Date: 20240102
  Transmission Date: 20240409
  Serious: Yes (Hospitalization)
  Sender: FDA-Public Use
  Company Number: BR-GLAXOSMITHKLINE-BR2023AMR157947

PATIENT

DRUGS (1)
  1. SERETIDE [Suspect]
     Active Substance: FLUTICASONE PROPIONATE\SALMETEROL XINAFOATE
     Indication: Oxygen therapy
     Dosage: UNK, BID 25/125 MCG 120 DOSES CC

REACTIONS (3)
  - Hospitalisation [Not Recovered/Not Resolved]
  - Product use in unapproved indication [Unknown]
  - Product complaint [Unknown]
